FAERS Safety Report 9331367 (Version 5)
Quarter: 2014Q1

REPORT INFORMATION
  Report Type: Spontaneous
  Country: AT (occurrence: AT)
  Receive Date: 20130605
  Receipt Date: 20140113
  Transmission Date: 20141002
  Serious: Yes (Death, Other)
  Sender: FDA-Public Use
  Company Number: AT-BAXTER-2013BAX020073

PATIENT
  Age: 61 Year
  Sex: Female
  Weight: 55 kg

DRUGS (2)
  1. NATRIUMCHLORID 0,9% ^BAXTER^ VIAFLO - INFUSIONSL?SUNG [Suspect]
     Indication: BLOOD PRESSURE MANAGEMENT
     Route: 013
     Dates: start: 20130515, end: 20130521
  2. NATRIUMCHLORID 0,9% ^BAXTER^ VIAFLO - INFUSIONSL?SUNG [Suspect]
     Indication: OFF LABEL USE

REACTIONS (5)
  - Cerebral ischaemia [Fatal]
  - Air embolism [Fatal]
  - Brain oedema [Unknown]
  - Brain stem syndrome [Unknown]
  - Coma [Unknown]
